FAERS Safety Report 9417291 (Version 1)
Quarter: 2013Q3

REPORT INFORMATION
  Report Type: Spontaneous
  Country: US (occurrence: US)
  Receive Date: 20130724
  Receipt Date: 20130724
  Transmission Date: 20140515
  Serious: No
  Sender: FDA-Public Use
  Company Number: US-BRISTOL-MYERS SQUIBB COMPANY-18931246

PATIENT
  Age: 76 Year
  Sex: Female

DRUGS (6)
  1. ELIQUIS [Suspect]
     Indication: THROMBOSIS
     Dates: start: 2013
  2. ELIQUIS [Suspect]
     Indication: ATRIAL FIBRILLATION
     Dates: start: 2013
  3. TOPROL [Concomitant]
  4. CALTRATE [Concomitant]
  5. PROBIOTICA [Concomitant]
  6. METAMUCIL [Concomitant]

REACTIONS (1)
  - Chronic pigmented purpura [Unknown]
